FAERS Safety Report 4602585-9 (Version None)
Quarter: 2005Q1

REPORT INFORMATION
  Report Type: 
  Country: None (occurrence: None)
  Receive Date: 20050309
  Receipt Date: 20050302
  Transmission Date: 20050727
  Serious: Yes (Other)
  Sender: FDA-Public Use
  Company Number: 200511976GDDC

PATIENT
  Age: 59 Year
  Sex: Male
  Weight: 87 kg

DRUGS (3)
  1. ENOXAPARIN [Suspect]
     Indication: DEEP VEIN THROMBOSIS
     Route: 058
     Dates: start: 20050215, end: 20050219
  2. GLUCOSAMINE [Concomitant]
     Indication: ARTHROPATHY
     Route: 048
  3. CHONDROITIN [Concomitant]
     Indication: ARTHROPATHY
     Route: 048

REACTIONS (4)
  - CIRCULATORY COLLAPSE [None]
  - DIZZINESS [None]
  - SKIN DISCOLOURATION [None]
  - SYNCOPE [None]
